FAERS Safety Report 15712480 (Version 1)
Quarter: 2020Q3

REPORT INFORMATION
  Report Type: Spontaneous
  Country: DE (occurrence: DE)
  Receive Date: 20181212
  Receipt Date: 20181212
  Transmission Date: 20201105
  Serious: Yes (Hospitalization)
  Sender: FDA-Public Use
  Company Number: DE-ROCHE-2228360

PATIENT
  Age: 82 Year
  Sex: Male
  Weight: 55 kg

DRUGS (1)
  1. ALECTINIB. [Suspect]
     Active Substance: ALECTINIB
     Indication: BRONCHIAL CARCINOMA
     Route: 065
     Dates: start: 201807, end: 201811

REACTIONS (2)
  - Interstitial lung disease [Unknown]
  - Lung opacity [Unknown]

NARRATIVE: CASE EVENT DATE: 20181122
